FAERS Safety Report 25851541 (Version 3)
Quarter: 2025Q4

REPORT INFORMATION
  Report Type: Spontaneous
  Country: US (occurrence: US)
  Receive Date: 20250926
  Receipt Date: 20251016
  Transmission Date: 20260118
  Serious: Yes (Hospitalization)
  Sender: DERMARITE INDUSTRIES
  Company Number: US-DERMARITE INDUSTRIES, LLC.-2025-DER-US000027

PATIENT

DRUGS (1)
  1. PERIGUARD [Suspect]
     Active Substance: PETROLATUM
     Indication: Dermatitis diaper
     Dosage: UNK, EVERY DIAPER CHANGE
     Route: 061
     Dates: start: 20250903, end: 20250915

REACTIONS (3)
  - Rash [Not Recovered/Not Resolved]
  - Systemic inflammatory response syndrome [Recovered/Resolved]
  - Sepsis [Recovered/Resolved]

NARRATIVE: CASE EVENT DATE: 20250901
